FAERS Safety Report 7293583-8 (Version None)
Quarter: 2011Q1

REPORT INFORMATION
  Report Type: 
  Country: None (occurrence: None)
  Receive Date: 20110215
  Receipt Date: 20110210
  Transmission Date: 20110831
  Serious: Yes (Hospitalization)
  Sender: FDA-Public Use
  Company Number: US-PFIZER INC-2011032149

PATIENT
  Sex: Male

DRUGS (2)
  1. LIPITOR [Suspect]
  2. HYDROCODONE [Suspect]

REACTIONS (4)
  - COUGH [None]
  - DYSPNOEA [None]
  - INCREASED UPPER AIRWAY SECRETION [None]
  - MALAISE [None]
